FAERS Safety Report 6554021-3 (Version None)
Quarter: 2010Q1

REPORT INFORMATION
  Report Type: 
  Country: None (occurrence: None)
  Receive Date: 20100125
  Receipt Date: 20091123
  Transmission Date: 20100710
  Serious: Yes (Disabling)
  Sender: FDA-Public Use
  Company Number: 2009AC000462

PATIENT
  Age: 63 Year
  Sex: Female

DRUGS (7)
  1. DIGOXIN [Suspect]
     Dosage: PO
     Route: 048
     Dates: start: 20060101
  2. ASPIRIN [Concomitant]
  3. MULTI-VITAMIN [Concomitant]
  4. SYNTHROID [Concomitant]
  5. TYLENOL ARTHRITIS EXTENDED RELEASE [Concomitant]
  6. TRICOR [Concomitant]
  7. FISH OIL [Concomitant]

REACTIONS (15)
  - ANXIETY [None]
  - ARTHRITIS [None]
  - ATRIAL FLUTTER [None]
  - CARDIAC FLUTTER [None]
  - CARDIAC MURMUR [None]
  - DEPRESSION [None]
  - ECONOMIC PROBLEM [None]
  - HYPERLIPIDAEMIA [None]
  - HYPERTENSION [None]
  - HYPOTHYROIDISM [None]
  - IMPAIRED WORK ABILITY [None]
  - MULTIPLE INJURIES [None]
  - PAIN [None]
  - SUPRAVENTRICULAR EXTRASYSTOLES [None]
  - SYSTEMIC LUPUS ERYTHEMATOSUS [None]
